FAERS Safety Report 6485360-2 (Version None)
Quarter: 2009Q4

REPORT INFORMATION
  Report Type: 
  Country: None (occurrence: None)
  Receive Date: 20091204
  Receipt Date: 20091130
  Transmission Date: 20100525
  Serious: Yes (Hospitalization)
  Sender: FDA-Public Use
  Company Number: SPV1-2009-01973

PATIENT
  Age: 75 Year
  Sex: Male

DRUGS (11)
  1. FOSRENOL [Suspect]
     Dosage: 750 MG, 3X/DAY:TID, ORAL
     Route: 048
     Dates: start: 20080101
  2. RENAGEL [Concomitant]
  3. CALCIUM (CALCIUM) [Concomitant]
  4. SODIUM BICARBONATE IN PLASTIC CONTAINER [Concomitant]
  5. VENOFER [Concomitant]
  6. BETOLVID (CYANOCOBALAMIN) [Concomitant]
  7. FOLACIN /00024201/ (FOLIC ACID) [Concomitant]
  8. ARANESP [Concomitant]
  9. FUROSEMIDE [Concomitant]
  10. SIMVASTATIN [Concomitant]
  11. LEVOTHYROXINE SODIUM [Concomitant]

REACTIONS (3)
  - ABDOMINAL X-RAY [None]
  - CHOLECYSTITIS [None]
  - LIVER FUNCTION TEST ABNORMAL [None]
